FAERS Safety Report 15802936 (Version 1)
Quarter: 2019Q1

REPORT INFORMATION
  Report Type: Spontaneous
  Country: US (occurrence: US)
  Receive Date: 20190109
  Receipt Date: 20190109
  Transmission Date: 20190417
  Serious: Yes (Other)
  Sender: FDA-Public Use
  Company Number: None

PATIENT
  Age: 55 Year
  Sex: Female
  Weight: 106.6 kg

DRUGS (1)
  1. RITUXAN [Suspect]
     Active Substance: RITUXIMAB
     Indication: PSORIATIC ARTHROPATHY
     Dosage: ?          OTHER FREQUENCY:EVERY 2 WEEKS X 2;?
     Route: 041
     Dates: start: 20190108, end: 20190108

REACTIONS (4)
  - Erythema [None]
  - Oral pruritus [None]
  - Pruritus [None]
  - Ear pruritus [None]

NARRATIVE: CASE EVENT DATE: 20190108
